FAERS Safety Report 4558038-X (Version None)
Quarter: 2005Q1

REPORT INFORMATION
  Report Type: 
  Country: None (occurrence: None)
  Receive Date: 20050121
  Receipt Date: 20040628
  Transmission Date: 20050727
  Serious: No
  Sender: FDA-Public Use
  Company Number: US-BRISTOL-MYERS SQUIBB COMPANY-12626735

PATIENT
  Sex: Male

DRUGS (1)
  1. SERZONE [Suspect]
     Dosage: DURATION OF THERAPY:  SEVERAL YEARS

REACTIONS (1)
  - SUICIDAL IDEATION [None]
